FAERS Safety Report 24787192 (Version 1)
Quarter: 2024Q4

REPORT INFORMATION
  Report Type: Spontaneous
  Country: CN (occurrence: CN)
  Receive Date: 20241230
  Receipt Date: 20241230
  Transmission Date: 20250114
  Serious: Yes (Hospitalization, Other)
  Sender: Kenvue
  Company Number: CN-KENVUE-20241206979

PATIENT

DRUGS (4)
  1. CHILDRENS MOTRIN [Suspect]
     Active Substance: IBUPROFEN
     Indication: Pyrexia
     Dosage: 15 MILLILITER, THRICE A DAY, (3 TIMES IN TOTAL)
     Route: 048
     Dates: start: 20241130, end: 20241201
  2. IBUPROFEN [Suspect]
     Active Substance: IBUPROFEN
     Indication: Pyrexia
     Dosage: 0.3 GRAM, ONCE
     Route: 065
     Dates: start: 20241130
  3. HERBALS\MENTHOL [Suspect]
     Active Substance: HERBALS\MENTHOL
     Indication: Pyrexia
     Dosage: 1.4 GRAM, ONCE
     Route: 048
     Dates: start: 20241130, end: 20241201
  4. HERBALS [Suspect]
     Active Substance: HERBALS
     Indication: Pyrexia
     Dosage: XIAOCHAIHU GRANULES 10G TID (4 TIMES IN TOTAL) EVERY 6 HOURS.
     Route: 048
     Dates: start: 20241130, end: 20241201

REACTIONS (3)
  - Product administered to patient of inappropriate age [Unknown]
  - Product administration error [Unknown]
  - Drug-induced liver injury [Recovering/Resolving]

NARRATIVE: CASE EVENT DATE: 20241130
